FAERS Safety Report 4542319-X (Version None)
Quarter: 2004Q4

REPORT INFORMATION
  Report Type: 
  Country: None (occurrence: None)
  Receive Date: 20041229
  Receipt Date: 20041220
  Transmission Date: 20050328
  Serious: Yes (Hospitalization)
  Sender: FDA-Public Use
  Company Number: 2004115561

PATIENT
  Sex: Female

DRUGS (1)
  1. UNICAP (MULTIVITAMINS, MINERALS) [Suspect]
     Dosage: ONE TABLET DAILY, ORAL
     Route: 048

REACTIONS (2)
  - BREAST CANCER FEMALE [None]
  - BREAST CANCER RECURRENT [None]
